FAERS Safety Report 16564544 (Version 1)
Quarter: 2019Q3

REPORT INFORMATION
  Report Type: Spontaneous
  Country: US (occurrence: US)
  Receive Date: 20190712
  Receipt Date: 20190712
  Transmission Date: 20191004
  Serious: Yes (Death, Other)
  Sender: FDA-Public Use
  Company Number: US-REGENERON PHARMACEUTICALS, INC.-2019-42123

PATIENT

DRUGS (1)
  1. EYLEA [Suspect]
     Active Substance: AFLIBERCEPT
     Indication: DIABETIC RETINAL OEDEMA
     Dosage: 2 MG, Q3W OR AS NEEDED, IN THE LEFT AND RIGHT EYE
     Route: 031
     Dates: start: 200612

REACTIONS (1)
  - Death [Fatal]

NARRATIVE: CASE EVENT DATE: 20190610
